FAERS Safety Report 9861948 (Version 1)
Quarter: 2014Q1

REPORT INFORMATION
  Report Type: Spontaneous
  Country: US (occurrence: US)
  Receive Date: 20140203
  Receipt Date: 20140203
  Transmission Date: 20141002
  Serious: Yes (Other)
  Sender: FDA-Public Use
  Company Number: US-PFIZER INC-2014031114

PATIENT
  Age: 72 Year
  Sex: Female
  Weight: 61.2 kg

DRUGS (4)
  1. PREMARIN [Suspect]
     Indication: BLADDER PROLAPSE
     Dosage: 1 G, WEEKLY
     Route: 067
     Dates: start: 201205, end: 201312
  2. VITAMIN C [Concomitant]
     Dosage: UNK
  3. FISH OIL [Concomitant]
     Dosage: UNK
  4. MULTIVITAMINS [Concomitant]
     Dosage: UNK

REACTIONS (12)
  - Cerebrovascular accident [Unknown]
  - Dysphagia [Unknown]
  - Dizziness [Recovered/Resolved]
  - Dysarthria [Unknown]
  - Dysphonia [Unknown]
  - Tongue disorder [Unknown]
  - Eating disorder [Unknown]
  - Dyspnoea [Unknown]
  - Headache [Recovered/Resolved]
  - Dry mouth [Unknown]
  - Muscular weakness [Unknown]
  - Gastrooesophageal reflux disease [Unknown]
